FAERS Safety Report 5160602-4 (Version None)
Quarter: 2006Q4

REPORT INFORMATION
  Report Type: 
  Country: None (occurrence: None)
  Receive Date: 20061121
  Receipt Date: 20060525
  Transmission Date: 20070319
  Serious: Yes (Other)
  Sender: FDA-Public Use
  Company Number: 2006072495

PATIENT
  Age: 88 Year
  Sex: Female

DRUGS (10)
  1. BEXTRA [Suspect]
     Indication: ARTHRITIS
     Dates: start: 20040726, end: 20041101
  2. ASPIRIN [Concomitant]
  3. LOPRESSOR [Concomitant]
  4. DIGOXIN [Concomitant]
  5. LASIX [Concomitant]
  6. COMBIVENT (IPARTROPIUM BROMIDE, SALBUTAMOL SULFATE) [Concomitant]
  7. SEREVENT [Concomitant]
  8. VIOXX [Concomitant]
  9. ALEVE [Concomitant]
  10. LIPITOR [Concomitant]

REACTIONS (5)
  - CELLULITIS [None]
  - SCAR [None]
  - SKIN DISORDER [None]
  - STEVENS-JOHNSON SYNDROME [None]
  - TOXIC EPIDERMAL NECROLYSIS [None]
